FAERS Safety Report 4939842-2 (Version None)
Quarter: 2006Q1

REPORT INFORMATION
  Report Type: 
  Country: None (occurrence: None)
  Receive Date: 20060310
  Receipt Date: 20051006
  Transmission Date: 20060701
  Serious: Yes (Hospitalization)
  Sender: FDA-Public Use
  Company Number: US-MERCK-0510USA05636

PATIENT
  Age: 61 Year
  Sex: Male

DRUGS (1)
  1. VIOXX [Suspect]
     Route: 048
     Dates: start: 20010101, end: 20010101

REACTIONS (5)
  - ANXIETY [None]
  - ARTERIOSCLEROSIS CORONARY ARTERY [None]
  - ATRIOVENTRICULAR BLOCK [None]
  - MITRAL VALVE INCOMPETENCE [None]
  - MYOCARDIAL INFARCTION [None]
